FAERS Safety Report 16914095 (Version 4)
Quarter: 2019Q4

REPORT INFORMATION
  Report Type: Spontaneous
  Country: US (occurrence: US)
  Receive Date: 20191014
  Receipt Date: 20191129
  Transmission Date: 20200122
  Serious: Yes (Hospitalization)
  Sender: FDA-Public Use
  Company Number: US-PFIZER INC-2019439916

PATIENT
  Age: 93 Year
  Sex: Female
  Weight: 46.26 kg

DRUGS (1)
  1. LYRICA [Suspect]
     Active Substance: PREGABALIN
     Indication: NEUROPATHY PERIPHERAL
     Dosage: 75 MG, 2X/DAY (75MG TWICE A DAY)

REACTIONS (3)
  - Malaise [Unknown]
  - Fall [Unknown]
  - Feeling abnormal [Unknown]
